FAERS Safety Report 16751969 (Version 1)
Quarter: 2019Q3

REPORT INFORMATION
  Report Type: Spontaneous
  Country: US (occurrence: US)
  Receive Date: 20190828
  Receipt Date: 20190828
  Transmission Date: 20191005
  Serious: No
  Sender: FDA-Public Use
  Company Number: US-ENDO PHARMACEUTICALS INC-2019-104098

PATIENT
  Sex: Male
  Weight: 88 kg

DRUGS (1)
  1. PREDNISONE. [Suspect]
     Active Substance: PREDNISONE
     Indication: PAIN
     Dosage: 3 DF, UNKNOWN
     Route: 048
     Dates: start: 20180831

REACTIONS (2)
  - Pain [Unknown]
  - Joint swelling [Unknown]
